FAERS Safety Report 19727246 (Version 1)
Quarter: 2021Q3

REPORT INFORMATION
  Report Type: Spontaneous
  Country: US (occurrence: US)
  Receive Date: 20210820
  Receipt Date: 20210820
  Transmission Date: 20211014
  Serious: Yes (Hospitalization)
  Sender: FDA-Public Use
  Company Number: None

PATIENT
  Age: 68 Year
  Sex: Female

DRUGS (16)
  1. JUXTAPID [Suspect]
     Active Substance: LOMITAPIDE MESYLATE
     Indication: TYPE IIA HYPERLIPIDAEMIA
     Route: 048
     Dates: end: 20210805
  2. VALSARTAN 80MG [Concomitant]
     Active Substance: VALSARTAN
  3. ATORVASTATIN [Concomitant]
     Active Substance: ATORVASTATIN
  4. PROPRANOLOL [Concomitant]
     Active Substance: PROPRANOLOL HYDROCHLORIDE
  5. MULTIVITAMIN [Concomitant]
     Active Substance: VITAMINS
  6. VALSARTAN 160MG [Concomitant]
     Active Substance: VALSARTAN
  7. COLACE [Concomitant]
     Active Substance: DOCUSATE SODIUM
  8. ZETIA [Concomitant]
     Active Substance: EZETIMIBE
  9. WARFARIN SODIUM. [Concomitant]
     Active Substance: WARFARIN SODIUM
  10. SUPER OMEGA?3 CAPSULE [Concomitant]
  11. LEXAPRO [Concomitant]
     Active Substance: ESCITALOPRAM OXALATE
  12. PRIMIDONE. [Concomitant]
     Active Substance: PRIMIDONE
  13. VTIAMIN E 400 IU CAPSULE [Concomitant]
  14. ASPIRIN 81MG [Concomitant]
     Active Substance: ASPIRIN
  15. PEPCID 40MG [Concomitant]
  16. PANTOPRAZOLE [Concomitant]
     Active Substance: PANTOPRAZOLE

REACTIONS (2)
  - Therapy interrupted [None]
  - Gastrointestinal disorder [None]

NARRATIVE: CASE EVENT DATE: 20210805
